FAERS Safety Report 8037604-3 (Version None)
Quarter: 2012Q1

REPORT INFORMATION
  Report Type: 
  Country: None (occurrence: None)
  Receive Date: 20120111
  Receipt Date: 20111228
  Transmission Date: 20120608
  Serious: Yes (Other)
  Sender: FDA-Public Use
  Company Number: SE-CELGENEUS-150-50794-11043360

PATIENT
  Sex: Male

DRUGS (6)
  1. OMEPRAZOLE [Concomitant]
     Route: 065
  2. FINASTERID [Concomitant]
     Route: 065
  3. ORUDIS [Concomitant]
     Route: 065
  4. VIDAZA [Suspect]
     Route: 058
     Dates: start: 20101009, end: 20110305
  5. LEVOXIN [Concomitant]
     Route: 065
  6. TENORMIN [Concomitant]
     Route: 065

REACTIONS (1)
  - FAT NECROSIS [None]
